FAERS Safety Report 19975507 (Version 10)
Quarter: 2023Q4

REPORT INFORMATION
  Report Type: Spontaneous
  Country: US (occurrence: US)
  Receive Date: 20211020
  Receipt Date: 20231006
  Transmission Date: 20240110
  Serious: No
  Sender: FDA-Public Use
  Company Number: US-PFIZER INC-202101333860

PATIENT
  Age: 48 Year
  Sex: Female

DRUGS (8)
  1. IBRANCE [Suspect]
     Active Substance: PALBOCICLIB
     Indication: Breast cancer female
     Dosage: 125 MG
     Dates: start: 20190814
  2. IBRANCE [Suspect]
     Active Substance: PALBOCICLIB
     Dosage: 125 MG
     Dates: start: 20190816
  3. IBRANCE [Suspect]
     Active Substance: PALBOCICLIB
     Dosage: 125 MG, CYCLIC (EVERY DAY FOR 21 DAYS ON THEN 7 DAYS OFF)
     Route: 048
     Dates: start: 20200623
  4. IBRANCE [Suspect]
     Active Substance: PALBOCICLIB
     Dosage: 100 MG, CYCLIC (WITH FOOD ONCE A DAY FOR 21 DAYS FOLLOWED BY 7 DAYS OFF. REPEAT EVERY 28 DAYS)
     Route: 048
     Dates: start: 20220916, end: 2023
  5. IBRANCE [Suspect]
     Active Substance: PALBOCICLIB
     Dosage: 100 MG, CYCLIC (FOOD ONCE A DAY FOR 21 DAYS FOLLOWED BY 7 DAYS OFF. REPEAT EVERY 28 DAYS)
     Route: 048
     Dates: start: 20220916
  6. ELIGARD [Concomitant]
     Active Substance: LEUPROLIDE ACETATE
     Dosage: 30 MG
  7. TAMOXIFEN CITRATE [Concomitant]
     Active Substance: TAMOXIFEN CITRATE
     Dosage: UNK
  8. TAMOXIFEN [Concomitant]
     Active Substance: TAMOXIFEN
     Dosage: UNK

REACTIONS (3)
  - White blood cell count decreased [Unknown]
  - Full blood count abnormal [Unknown]
  - Anaemia [Unknown]

NARRATIVE: CASE EVENT DATE: 20211206
